FAERS Safety Report 9246756 (Version 1)
Quarter: 2013Q2

REPORT INFORMATION
  Report Type: Spontaneous
  Country: US (occurrence: US)
  Receive Date: 20130422
  Receipt Date: 20130422
  Transmission Date: 20140414
  Serious: No
  Sender: FDA-Public Use
  Company Number: US-ASTELLAS-2013US001444

PATIENT
  Age: 73 Year
  Sex: Male

DRUGS (1)
  1. LEXISCAN [Suspect]
     Indication: SCAN MYOCARDIAL PERFUSION
     Dosage: 0.4 UNK, TOTAL DOSE
     Route: 042
     Dates: start: 20130118, end: 20130118

REACTIONS (3)
  - Local swelling [Recovering/Resolving]
  - Erythema [Recovering/Resolving]
  - Hyperkeratosis [Unknown]
